FAERS Safety Report 22274467 (Version 2)
Quarter: 2023Q2

REPORT INFORMATION
  Report Type: Spontaneous
  Country: GB (occurrence: GB)
  Receive Date: 20230502
  Receipt Date: 20230508
  Transmission Date: 20230721
  Serious: Yes (Death, Other)
  Sender: FDA-Public Use
  Company Number: GB-MYLANLABS-2023M1046154

PATIENT
  Sex: Male
  Weight: 83.3 kg

DRUGS (1)
  1. CLOZARIL [Suspect]
     Active Substance: CLOZAPINE
     Indication: Product used for unknown indication
     Dosage: 75 MILLIGRAM QD (NOCTE)
     Route: 048
     Dates: start: 20180821, end: 20230426

REACTIONS (2)
  - Neoplasm malignant [Fatal]
  - Near death experience [Unknown]
